FAERS Safety Report 10483062 (Version 2)
Quarter: 2014Q4

REPORT INFORMATION
  Report Type: Spontaneous
  Country: TR (occurrence: TR)
  Receive Date: 20140930
  Receipt Date: 20141027
  Transmission Date: 20150528
  Serious: Yes (Other)
  Sender: FDA-Public Use
  Company Number: TR-ROCHE-1466701

PATIENT
  Sex: Female
  Weight: 60 kg

DRUGS (5)
  1. DELTACORTILEN [Suspect]
     Active Substance: PREDNISOLONE ACETATE
     Indication: PRODUCT USED FOR UNKNOWN INDICATION
     Route: 065
  2. DELIX (TURKEY) [Concomitant]
  3. MABTHERA [Suspect]
     Active Substance: RITUXIMAB
     Indication: PRODUCT USED FOR UNKNOWN INDICATION
     Route: 042
     Dates: start: 20140303
  4. ARAVA [Suspect]
     Active Substance: LEFLUNOMIDE
     Indication: PRODUCT USED FOR UNKNOWN INDICATION
     Route: 065
  5. MUSCORIL [Concomitant]
     Active Substance: THIOCOLCHICOSIDE

REACTIONS (2)
  - Alopecia [Recovering/Resolving]
  - Neoplasm [Recovering/Resolving]
